FAERS Safety Report 7584707-3 (Version None)
Quarter: 2011Q2

REPORT INFORMATION
  Report Type: 
  Country: None (occurrence: None)
  Receive Date: 20110630
  Receipt Date: 20110616
  Transmission Date: 20111010
  Serious: Yes (Other)
  Sender: FDA-Public Use
  Company Number: PHHY2010JP56037

PATIENT
  Sex: Male
  Weight: 66 kg

DRUGS (24)
  1. VALSARTAN [Suspect]
     Indication: HYPERTENSION
     Dosage: 40 MG, QD
     Route: 048
     Dates: start: 20071116, end: 20071120
  2. LENDORMIN [Concomitant]
     Dosage: 0.25MG
     Dates: start: 20080228, end: 20090311
  3. ZOLPIDEM [Concomitant]
     Dosage: 5 MG
     Route: 048
     Dates: start: 20071117, end: 20080227
  4. ASPIRIN [Concomitant]
  5. CARVEDILOL [Concomitant]
     Indication: HYPERTENSION
     Dosage: 10 MG
     Route: 048
     Dates: start: 20080302
  6. ASPARA K [Concomitant]
     Dosage: 600MG
  7. FAMOTIDINE [Concomitant]
     Dosage: 20 MG
     Route: 048
     Dates: start: 20071114, end: 20080127
  8. CONIEL [Concomitant]
     Dosage: 8 MG
     Route: 048
  9. CONIEL [Concomitant]
     Dosage: 12 MG
     Route: 048
     Dates: end: 20090311
  10. TRICHLORMETHIAZIDE [Concomitant]
     Indication: HYPERTENSION
     Dosage: 2 MG
     Route: 048
     Dates: start: 20090122, end: 20090311
  11. CONIEL [Concomitant]
     Indication: HYPERTENSION
     Dosage: 4MG
     Route: 048
     Dates: start: 20071123
  12. PREDNISOLONE [Concomitant]
     Dosage: 20 MG
  13. INNOLET N [Concomitant]
     Dosage: 18IU
  14. ALLOPURINOL [Concomitant]
     Dosage: 100MG
  15. KREMEZIN [Concomitant]
     Dosage: 4 G
     Route: 048
     Dates: start: 20081224, end: 20090311
  16. VALSARTAN [Suspect]
     Dosage: 80 MG, BID
     Route: 048
     Dates: start: 20071127, end: 20090311
  17. LIVALO [Concomitant]
     Dosage: 2 MG
     Route: 048
     Dates: start: 20071115, end: 20090311
  18. LUPRAC [Concomitant]
     Dosage: 8 MG
     Route: 048
     Dates: start: 20081224, end: 20090311
  19. ESPO [Concomitant]
     Dosage: 12000 IU
     Route: 058
     Dates: start: 20090205, end: 20090311
  20. VALSARTAN [Suspect]
     Dosage: 80 MG, QD
     Route: 048
     Dates: start: 20071121, end: 20071126
  21. CARVEDILOL [Concomitant]
     Dosage: 20 MG
     Dates: end: 20090311
  22. LASIX [Concomitant]
     Dosage: 60 MG
     Route: 048
     Dates: start: 20071114, end: 20090311
  23. LANSOPRAZOLE [Concomitant]
     Dosage: 15MG
  24. GASMOTIN [Concomitant]
     Dosage: 15 MG

REACTIONS (5)
  - HYPERTENSION [None]
  - BLOOD UREA INCREASED [None]
  - NEPHROGENIC ANAEMIA [None]
  - BLOOD CREATININE INCREASED [None]
  - BLOOD CHOLESTEROL INCREASED [None]
